FAERS Safety Report 4504607-2 (Version None)
Quarter: 2004Q4

REPORT INFORMATION
  Report Type: 
  Country: None (occurrence: None)
  Receive Date: 20041118
  Receipt Date: 20041026
  Transmission Date: 20050328
  Serious: Yes (Hospitalization)
  Sender: FDA-Public Use
  Company Number: JP-GLAXOSMITHKLINE-B0349719A

PATIENT
  Age: 78 Year
  Sex: Male

DRUGS (9)
  1. ZANTAC [Suspect]
     Indication: GASTRITIS
     Dosage: 75MG PER DAY
     Route: 048
     Dates: end: 20041021
  2. ACECOL [Concomitant]
     Dosage: 2MG PER DAY
     Route: 048
  3. BUFFERIN [Concomitant]
     Dosage: 81MG PER DAY
     Route: 048
  4. AMLODIN [Concomitant]
     Dosage: 10MG PER DAY
     Route: 048
  5. ZYLORIC [Concomitant]
     Dosage: 100MG PER DAY
     Route: 048
  6. LASIX [Concomitant]
     Dosage: 80MG PER DAY
     Route: 065
  7. INSULIN [Concomitant]
  8. EPOETIN BETA [Concomitant]
  9. HEPARIN [Concomitant]

REACTIONS (2)
  - CONVULSION [None]
  - DEPRESSED LEVEL OF CONSCIOUSNESS [None]
